FAERS Safety Report 13250507 (Version 1)
Quarter: 2017Q1

REPORT INFORMATION
  Report Type: Spontaneous
  Country: US (occurrence: US)
  Receive Date: 20170219
  Receipt Date: 20170219
  Transmission Date: 20170428
  Serious: Yes (Hospitalization)
  Sender: FDA-Public Use
  Company Number: US-TEVA-740391USA

PATIENT
  Sex: Female

DRUGS (1)
  1. COPAXONE [Suspect]
     Active Substance: GLATIRAMER ACETATE
     Dosage: UNKNOWN FORM STRENGTH
     Route: 065

REACTIONS (7)
  - Swelling [Unknown]
  - Erythema [Unknown]
  - Pruritus [Unknown]
  - Mass [Unknown]
  - Feeling hot [Unknown]
  - Pain [Unknown]
  - Drug hypersensitivity [Unknown]
